FAERS Safety Report 12623176 (Version 1)
Quarter: 2016Q3

REPORT INFORMATION
  Report Type: Spontaneous
  Country: US (occurrence: US)
  Receive Date: 20160804
  Receipt Date: 20160804
  Transmission Date: 20161109
  Serious: No
  Sender: FDA-Public Use
  Company Number: US-PFIZER INC-2016349570

PATIENT
  Age: 42 Year
  Sex: Female
  Weight: 78.91 kg

DRUGS (1)
  1. ADVIL [Suspect]
     Active Substance: IBUPROFEN
     Indication: HEADACHE
     Dosage: 600 MG, SINGLE (3 TABLETS 600 MG, TABLETS, ORALLY, ONCE)
     Route: 048
     Dates: start: 20160714, end: 20160714

REACTIONS (12)
  - Chest pain [Recovering/Resolving]
  - Paranoia [Recovering/Resolving]
  - Wrong drug administered [Unknown]
  - Sensation of foreign body [Recovering/Resolving]
  - Throat irritation [Recovering/Resolving]
  - Oesophageal pain [Recovering/Resolving]
  - Pain [Recovering/Resolving]
  - Dysgeusia [Recovering/Resolving]
  - Burning sensation [Recovering/Resolving]
  - Chest discomfort [Recovering/Resolving]
  - Foreign body [Recovering/Resolving]
  - Throat tightness [Recovering/Resolving]

NARRATIVE: CASE EVENT DATE: 201607
